FAERS Safety Report 7844116-6 (Version None)
Quarter: 2011Q4

REPORT INFORMATION
  Report Type: 
  Country: None (occurrence: None)
  Receive Date: 20111025
  Receipt Date: 20111012
  Transmission Date: 20120403
  Serious: Yes (Hospitalization)
  Sender: FDA-Public Use
  Company Number: PHHO2010DK18710

PATIENT
  Sex: Male
  Weight: 84 kg

DRUGS (6)
  1. WARFARIN SODIUM [Suspect]
     Indication: ANTICOAGULANT THERAPY
     Dosage: 3 MG, QD
     Dates: start: 20091123, end: 20101208
  2. BLINDED ALISKIREN [Suspect]
     Indication: CARDIAC FAILURE
     Dosage: CODE NOT BROKEN
     Route: 048
     Dates: start: 20101109
  3. ENALAPRIL MALEATE [Suspect]
     Indication: CARDIAC FAILURE
     Dosage: CODE NOT BROKEN
     Route: 048
     Dates: start: 20101109
  4. ASPIRIN [Suspect]
     Indication: ANTIPLATELET THERAPY
     Dosage: 75 MG, QD
     Dates: start: 19910101, end: 20101208
  5. IRON [Concomitant]
     Indication: ANAEMIA
     Dosage: UNK
  6. BLINDED NO TREATMENT RECEIVED [Suspect]
     Indication: CARDIAC FAILURE
     Dosage: CODE NOT BROKEN
     Route: 048
     Dates: start: 20101109

REACTIONS (6)
  - MELAENA [None]
  - VOMITING [None]
  - DUODENAL ULCER [None]
  - ABDOMINAL PAIN [None]
  - FAECES DISCOLOURED [None]
  - HAEMATEMESIS [None]
